FAERS Safety Report 6026061-4 (Version None)
Quarter: 2009Q1

REPORT INFORMATION
  Report Type: 
  Country: None (occurrence: None)
  Receive Date: 20090102
  Receipt Date: 20081219
  Transmission Date: 20090719
  Serious: Yes (Hospitalization, Disabling)
  Sender: FDA-Public Use
  Company Number: DE-SANOFI-SYNTHELABO-A01200816388

PATIENT
  Sex: Female
  Weight: 65 kg

DRUGS (8)
  1. CALCIUM FOLINATE [Suspect]
     Dosage: 360 MG
     Dates: start: 20081216, end: 20081217
  2. GRANISETRON HCL [Concomitant]
     Indication: PROPHYLAXIS
     Dosage: UNK
     Dates: start: 20081216, end: 20081217
  3. DEXAMETHASONE [Concomitant]
     Indication: PROPHYLAXIS
     Dosage: UNK
     Dates: start: 20081216, end: 20081217
  4. METOCLOPRAMIDE [Concomitant]
     Indication: PROPHYLAXIS
     Dosage: UNK
     Dates: start: 20081216, end: 20081217
  5. NOVALGIN [Concomitant]
     Dosage: UNK
     Dates: start: 20081212
  6. AVE5026 OR PLACEBO [Concomitant]
     Indication: EMBOLISM VENOUS
     Dosage: UNK
     Route: 042
     Dates: start: 20081216
  7. OXALIPLATIN [Suspect]
     Indication: COLON CANCER
     Dosage: 153 MG
     Dates: start: 20081216, end: 20081216
  8. FLUOROURACIL [Suspect]
     Dosage: 1800 MG
     Dates: start: 20081216, end: 20081217

REACTIONS (1)
  - GENERAL PHYSICAL HEALTH DETERIORATION [None]
